FAERS Safety Report 12874612 (Version 1)
Quarter: 2016Q4

REPORT INFORMATION
  Report Type: Spontaneous
  Country: US (occurrence: US)
  Receive Date: 20161021
  Receipt Date: 20161021
  Transmission Date: 20170207
  Serious: Yes (Other)
  Sender: FDA-Public Use
  Company Number: US-ALLERGAN-1669403US

PATIENT
  Sex: Female

DRUGS (4)
  1. BOTOX [Suspect]
     Active Substance: ONABOTULINUMTOXINA
     Dosage: 50 UNITS, SINGLE
     Route: 030
  2. AUBAGIO [Concomitant]
     Active Substance: TERIFLUNOMIDE
  3. BOTOX [Suspect]
     Active Substance: ONABOTULINUMTOXINA
     Indication: MUSCLE INJURY
     Dosage: 50 UNITS, SINGLE
     Route: 030
  4. AMPYRA [Concomitant]
     Active Substance: DALFAMPRIDINE

REACTIONS (5)
  - Alopecia [Unknown]
  - General physical health deterioration [Unknown]
  - Gait disturbance [Unknown]
  - Off label use [Unknown]
  - Central nervous system lesion [Unknown]
